FAERS Safety Report 5065293-9 (Version None)
Quarter: 2006Q3

REPORT INFORMATION
  Report Type: 
  Country: None (occurrence: None)
  Receive Date: 20060725
  Receipt Date: 20060720
  Transmission Date: 20061208
  Serious: Yes (Hospitalization)
  Sender: FDA-Public Use
  Company Number: A001-320-832

PATIENT
  Age: 70 Year
  Sex: Male
  Weight: 81 kg

DRUGS (11)
  1. DONEPEZIL HCL [Suspect]
     Indication: VASCULAR DEMENTIA
     Dosage: 5 MG, 1 IN 1 D, ORAL, 10 MG 1 IN 1 D; ORAL
     Route: 048
     Dates: start: 20041215, end: 20050302
  2. DONEPEZIL HCL [Suspect]
     Indication: VASCULAR DEMENTIA
     Dosage: 5 MG, 1 IN 1 D, ORAL, 10 MG 1 IN 1 D; ORAL
     Route: 048
     Dates: start: 20050305
  3. DONEPEZIL HCL [Suspect]
     Indication: VASCULAR DEMENTIA
     Dosage: DOUBLEBLIND, 1 IN 1 D, ORAL
     Route: 048
     Dates: start: 20040512, end: 20041027
  4. ASPIRIN [Concomitant]
  5. ALLOPURINOL [Concomitant]
  6. METFORMIN [Concomitant]
  7. GLICLAZIDE [Concomitant]
  8. VERAPAMIL [Concomitant]
  9. METHYLDOPA [Concomitant]
  10. ENALAPRIL MALEATE [Concomitant]
  11. FORTZAAR [Concomitant]

REACTIONS (5)
  - CONSTIPATION [None]
  - DIARRHOEA [None]
  - FAECAL INCONTINENCE [None]
  - LOWER RESPIRATORY TRACT INFECTION [None]
  - PNEUMONIA [None]
